FAERS Safety Report 17221382 (Version 2)
Quarter: 2020Q1

REPORT INFORMATION
  Report Type: Spontaneous
  Country: FR (occurrence: FR)
  Receive Date: 20200101
  Receipt Date: 20200110
  Transmission Date: 20200409
  Serious: Yes (Hospitalization, Other)
  Sender: FDA-Public Use
  Company Number: FR-AUROBINDO-AUR-APL-2019-108524

PATIENT
  Age: 55 Year
  Sex: Male
  Weight: 93 kg

DRUGS (11)
  1. CLOMIPRAMINE HYDROCHLORIDE. [Suspect]
     Active Substance: CLOMIPRAMINE HYDROCHLORIDE
     Indication: NEURALGIA
     Dosage: 75 MILLIGRAM, ONCE A DAY
     Route: 065
     Dates: start: 20191025, end: 20191104
  2. ROACTEMRA [Suspect]
     Active Substance: TOCILIZUMAB
     Indication: MALIGNANT FIBROUS HISTIOCYTOMA
     Dosage: UNK
     Route: 042
     Dates: start: 201907
  3. METHADONE AP HP [Suspect]
     Active Substance: METHADONE HYDROCHLORIDE
     Indication: CANCER PAIN
     Dosage: UNK
     Route: 048
     Dates: start: 201908
  4. MEROPENEM. [Suspect]
     Active Substance: MEROPENEM
     Indication: CELLULITIS
     Dosage: 6 GRAM, ONCE A DAY
     Route: 048
     Dates: start: 20191006, end: 20191104
  5. BACTRIM [Suspect]
     Active Substance: SULFAMETHOXAZOLE\TRIMETHOPRIM
     Indication: CELLULITIS
     Dosage: UNK
     Route: 048
     Dates: start: 20191003, end: 20191104
  6. CASPOFUNGINE EG [Suspect]
     Active Substance: CASPOFUNGIN ACETATE
     Indication: CELLULITIS
     Dosage: 50 MILLIGRAM, ONCE A DAY
     Route: 042
     Dates: start: 20191024, end: 20191104
  7. LEVOFLOXACIN. [Suspect]
     Active Substance: LEVOFLOXACIN
     Indication: CELLULITIS
     Dosage: 700 MILLIGRAM, ONCE A DAY
     Route: 048
     Dates: start: 20191024, end: 20191104
  8. RAMIPRIL TABLET [Suspect]
     Active Substance: RAMIPRIL
     Indication: HYPERTENSION
     Dosage: UNK
     Route: 048
     Dates: start: 20191024, end: 20191104
  9. DAPTOMYCINE ACCORD [Suspect]
     Active Substance: DAPTOMYCIN
     Indication: CELLULITIS
     Dosage: 700 MILLIGRAM, ONCE A DAY
     Route: 048
     Dates: start: 20191016, end: 20191104
  10. PREGABALIN. [Suspect]
     Active Substance: PREGABALIN
     Indication: NEURALGIA
     Dosage: 600 MILLIGRAM, ONCE A DAY
     Route: 048
     Dates: start: 2017
  11. YONDELIS [Suspect]
     Active Substance: TRABECTEDIN
     Indication: MALIGNANT FIBROUS HISTIOCYTOMA
     Dosage: UNK
     Route: 042
     Dates: start: 201908

REACTIONS (1)
  - Encephalopathy [Not Recovered/Not Resolved]

NARRATIVE: CASE EVENT DATE: 20191028
